FAERS Safety Report 23350836 (Version 1)
Quarter: 2023Q4

REPORT INFORMATION
  Report Type: Spontaneous
  Country: US (occurrence: US)
  Receive Date: 20231229
  Receipt Date: 20231229
  Transmission Date: 20240110
  Serious: No
  Sender: FDA-Public Use
  Company Number: US-PFIZER INC-PV202300205244

PATIENT
  Age: 52 Year
  Sex: Male

DRUGS (1)
  1. XELJANZ [Suspect]
     Active Substance: TOFACITINIB CITRATE
     Indication: Rheumatoid arthritis
     Dosage: UNK
     Dates: end: 202312

REACTIONS (6)
  - Skin exfoliation [Unknown]
  - Acne [Unknown]
  - Feeling hot [Unknown]
  - Erythema [Unknown]
  - Pruritus [Unknown]
  - Drug ineffective [Unknown]
